FAERS Safety Report 7461007-3 (Version None)
Quarter: 2011Q2

REPORT INFORMATION
  Report Type: 
  Country: None (occurrence: None)
  Receive Date: 20110505
  Receipt Date: 20110425
  Transmission Date: 20111010
  Serious: Yes (Hospitalization)
  Sender: FDA-Public Use
  Company Number: US-ELI_LILLY_AND_COMPANY-US201104007926

PATIENT
  Sex: Female

DRUGS (2)
  1. ASPIRIN [Concomitant]
     Indication: PROPHYLAXIS
     Dosage: 81 MG, QD
  2. EVISTA [Suspect]

REACTIONS (7)
  - DRUG HYPERSENSITIVITY [None]
  - RHINITIS ALLERGIC [None]
  - ASTHMA [None]
  - RHINITIS [None]
  - RASH [None]
  - SECRETION DISCHARGE [None]
  - NASAL POLYPS [None]
